FAERS Safety Report 10877136 (Version 3)
Quarter: 2017Q1

REPORT INFORMATION
  Report Type: Spontaneous
  Country: US (occurrence: US)
  Receive Date: 20150302
  Receipt Date: 20170322
  Transmission Date: 20170428
  Serious: Yes (Other)
  Sender: FDA-Public Use
  Company Number: US-JNJFOC-20150218319

PATIENT
  Sex: Male

DRUGS (4)
  1. RISPERDAL [Suspect]
     Active Substance: RISPERIDONE
     Indication: BIPOLAR DISORDER
     Route: 048
     Dates: end: 2011
  2. RISPERDAL [Suspect]
     Active Substance: RISPERIDONE
     Indication: BIPOLAR DISORDER
     Route: 048
     Dates: start: 2009, end: 20100505
  3. RISPERDAL M-TAB [Suspect]
     Active Substance: RISPERIDONE
     Indication: AGITATION
     Dosage: 2 MG EACH MORNING AND 6 MG EACH EVENING
     Route: 048
  4. RISPERDAL M-TAB [Suspect]
     Active Substance: RISPERIDONE
     Indication: BIPOLAR DISORDER
     Dosage: 2 MG EACH MORNING AND 6 MG EACH EVENING
     Route: 048

REACTIONS (5)
  - Erectile dysfunction [Recovered/Resolved]
  - Cardiovascular disorder [Unknown]
  - Hyperprolactinaemia [Unknown]
  - Obesity [Unknown]
  - Breast enlargement [Unknown]

NARRATIVE: CASE EVENT DATE: 2009
